FAERS Safety Report 10193568 (Version 1)
Quarter: 2014Q2

REPORT INFORMATION
  Report Type: Spontaneous
  Country: US (occurrence: US)
  Receive Date: 20140524
  Receipt Date: 20140524
  Transmission Date: 20141212
  Serious: No
  Sender: FDA-Public Use
  Company Number: US-SA-2013SA129858

PATIENT
  Age: 69 Year
  Sex: Female
  Weight: 77 kg

DRUGS (13)
  1. LANTUS [Suspect]
     Indication: DIABETES MELLITUS
     Route: 051
  2. METFORMIN [Suspect]
     Indication: DIABETES MELLITUS
     Route: 065
  3. PREMARIN [Suspect]
     Indication: VULVOVAGINAL PAIN
     Route: 067
     Dates: end: 201311
  4. DIOVAN [Suspect]
     Route: 065
  5. SIMVASTATIN [Suspect]
     Route: 065
  6. AMITIZA [Suspect]
     Route: 065
  7. ASPIRIN [Suspect]
     Route: 065
  8. POLYCARBOPHIL [Suspect]
     Route: 065
  9. GLAUCOSTAT /USA/ [Suspect]
     Indication: FAECES SOFT
     Route: 065
  10. ALL OTHER THERAPEUTIC PRODUCTS [Suspect]
     Route: 065
  11. CENTRUM [Suspect]
     Route: 065
  12. MULTIVITAMINS [Suspect]
     Indication: TINNITUS
     Route: 065
  13. LEVOTHYROXINE [Suspect]
     Indication: THYROID DISORDER
     Route: 065

REACTIONS (12)
  - Vulvovaginal discomfort [Unknown]
  - Vulvovaginal burning sensation [Not Recovered/Not Resolved]
  - Vulvovaginal dryness [Unknown]
  - Vulvovaginal pain [Not Recovered/Not Resolved]
  - Headache [Unknown]
  - Dyspnoea [Unknown]
  - Muscular weakness [Unknown]
  - Abdominal pain [Not Recovered/Not Resolved]
  - Dizziness [Unknown]
  - Dysuria [Unknown]
  - Weight decreased [Unknown]
  - Colitis [Unknown]
